FAERS Safety Report 5404252-0 (Version None)
Quarter: 2007Q3

REPORT INFORMATION
  Report Type: 
  Country: None (occurrence: None)
  Receive Date: 20070731
  Receipt Date: 20070720
  Transmission Date: 20080115
  Serious: Yes (Death)
  Sender: FDA-Public Use
  Company Number: GXKR2007US06283

PATIENT
  Age: 54 Year
  Sex: Male

DRUGS (3)
  1. AZATHIOPRINE [Suspect]
     Indication: CROHN'S DISEASE
  2. PREDNISONE [Suspect]
     Indication: CROHN'S DISEASE
  3. INFLIXIMAB(INFLIXIMAB) [Suspect]
     Indication: CROHN'S DISEASE
     Dosage: INFUSION

REACTIONS (8)
  - ACUTE HEPATIC FAILURE [None]
  - DISEASE RECURRENCE [None]
  - DRUG WITHDRAWAL SYNDROME [None]
  - GENERAL PHYSICAL HEALTH DETERIORATION [None]
  - HAEMODYNAMIC INSTABILITY [None]
  - HEPATIC ENCEPHALOPATHY [None]
  - HEPATITIS B [None]
  - HEPATORENAL SYNDROME [None]
